FAERS Safety Report 5986467-6 (Version None)
Quarter: 2008Q4

REPORT INFORMATION
  Report Type: 
  Country: None (occurrence: None)
  Receive Date: 20081209
  Receipt Date: 20081203
  Transmission Date: 20090506
  Serious: Yes (Hospitalization)
  Sender: FDA-Public Use
  Company Number: US-BAYER-200839967NA

PATIENT
  Age: 28 Year
  Sex: Female
  Weight: 61 kg

DRUGS (3)
  1. MIRENA [Suspect]
     Indication: CONTRACEPTION
     Route: 015
     Dates: start: 20080401, end: 20081111
  2. ZOLOFT [Concomitant]
     Route: 048
  3. CLONOPIN [Concomitant]
     Dosage: TOTAL DAILY DOSE: 1.0 MG
     Route: 048

REACTIONS (1)
  - BLINDNESS TRANSIENT [None]
